FAERS Safety Report 8586289-6 (Version None)
Quarter: 2012Q3

REPORT INFORMATION
  Report Type: 
  Country: None (occurrence: None)
  Receive Date: 20120810
  Receipt Date: 20120731
  Transmission Date: 20120928
  Serious: Yes (Other)
  Sender: FDA-Public Use
  Company Number: GB-ABBOTT-12P-167-0962845-00

PATIENT
  Age: 54 Year
  Sex: Male
  Weight: 95 kg

DRUGS (16)
  1. OMEPRAZOLE [Concomitant]
     Indication: PRODUCT USED FOR UNKNOWN INDICATION
  2. MESALAMINE [Concomitant]
     Indication: PRODUCT USED FOR UNKNOWN INDICATION
  3. ALBUTEROL SULATE [Concomitant]
     Indication: PRODUCT USED FOR UNKNOWN INDICATION
     Dosage: 2 PUFFS 4 TIMES A DAY AS REQUIRED
  4. ASPIRIN [Concomitant]
     Indication: PRODUCT USED FOR UNKNOWN INDICATION
  5. SERTRALINE HYDROCHLORIDE [Concomitant]
     Indication: PRODUCT USED FOR UNKNOWN INDICATION
     Dosage: TAKEN OFF LITHIUM SPRING 2012, EXTRA 50MG OF SERTRALINE INSTEAD
  6. FOSTAIR [Concomitant]
     Indication: PRODUCT USED FOR UNKNOWN INDICATION
     Dosage: TWO PUFFS TWICE A DAY
  7. DIAZEPAM [Concomitant]
     Indication: PRODUCT USED FOR UNKNOWN INDICATION
  8. QUETIAPINE FUMARATE [Concomitant]
     Indication: PRODUCT USED FOR UNKNOWN INDICATION
     Dosage: TWO 150MG AT NIGHT, ONE 100MG IN MORNING
  9. MIRTAZAPINE [Concomitant]
     Indication: PRODUCT USED FOR UNKNOWN INDICATION
     Dosage: ONE AT NIGHT
  10. SIMVASTATIN [Concomitant]
     Indication: PRODUCT USED FOR UNKNOWN INDICATION
  11. IBUPROFEN [Concomitant]
     Indication: PRODUCT USED FOR UNKNOWN INDICATION
  12. PEPTAC [Concomitant]
     Indication: PRODUCT USED FOR UNKNOWN INDICATION
  13. GAVISCON [Concomitant]
     Indication: PRODUCT USED FOR UNKNOWN INDICATION
  14. HUMIRA [Suspect]
     Indication: PRODUCT USED FOR UNKNOWN INDICATION
  15. ZOPICLONE [Concomitant]
     Indication: PRODUCT USED FOR UNKNOWN INDICATION
     Dosage: ONE OR TWO A NIGHT IF REQUIRED
  16. LITHIUM CARBONATE [Concomitant]
     Indication: PRODUCT USED FOR UNKNOWN INDICATION
     Dates: start: 20060101, end: 20120101

REACTIONS (17)
  - DIZZINESS [None]
  - SYNCOPE [None]
  - SARCOIDOSIS [None]
  - DYSPNOEA [None]
  - TOTAL LUNG CAPACITY DECREASED [None]
  - PULMONARY SARCOIDOSIS [None]
  - LYMPHADENOPATHY [None]
  - CORONARY ARTERY DISEASE [None]
  - RASH [None]
  - COLITIS ULCERATIVE [None]
  - DEHYDRATION [None]
  - OXYGEN SATURATION DECREASED [None]
  - PULMONARY FIBROSIS [None]
  - LUNG INFECTION [None]
  - CHEST PAIN [None]
  - FATIGUE [None]
  - FAT NECROSIS [None]
